FAERS Safety Report 20153073 (Version 1)
Quarter: 2021Q4

REPORT INFORMATION
  Report Type: Spontaneous
  Country: US (occurrence: US)
  Receive Date: 20211206
  Receipt Date: 20211206
  Transmission Date: 20220303
  Serious: No
  Sender: FDA-Public Use
  Company Number: US-PFIZER INC-202101638867

PATIENT
  Age: 85 Year
  Sex: Male
  Weight: 79.38 kg

DRUGS (5)
  1. PROTONIX [Suspect]
     Active Substance: PANTOPRAZOLE SODIUM
     Indication: Upper gastrointestinal haemorrhage
     Dosage: UNK
     Route: 042
  2. PROTONIX [Suspect]
     Active Substance: PANTOPRAZOLE SODIUM
     Indication: Upper gastrointestinal haemorrhage
     Dosage: 40 MG, 2X/DAY
     Route: 048
  3. GLIMEPIRIDE [Concomitant]
     Active Substance: GLIMEPIRIDE
     Dosage: 1 MG, DAILY
  4. LOSARTAN AND HYDROCHLOROTHIAZIDE [Concomitant]
     Active Substance: HYDROCHLOROTHIAZIDE\LOSARTAN POTASSIUM
     Dosage: 100-12.5 MG, ONCE A DAY
  5. SOTALOL [Concomitant]
     Active Substance: SOTALOL
     Dosage: 120 MG, 2X/DAY

REACTIONS (2)
  - Chromaturia [Recovering/Resolving]
  - Myoglobinuria [Recovering/Resolving]

NARRATIVE: CASE EVENT DATE: 20211121
